FAERS Safety Report 9060633 (Version 2)
Quarter: 2013Q1

REPORT INFORMATION
  Report Type: Spontaneous
  Country: US (occurrence: US)
  Receive Date: 20130212
  Receipt Date: 20130319
  Transmission Date: 20140127
  Serious: Yes (Hospitalization, Other)
  Sender: FDA-Public Use
  Company Number: CHPA2013US002240

PATIENT
  Age: 2 None
  Sex: Female
  Weight: 15.1 kg

DRUGS (1)
  1. TRIAMINIC [Suspect]
     Indication: NASOPHARYNGITIS
     Dosage: UNK, UNK
     Route: 048
     Dates: start: 20111221, end: 20111222

REACTIONS (8)
  - Pica [Unknown]
  - Accidental exposure to product [Recovered/Resolved]
  - Analgesic drug level increased [Recovered/Resolved]
  - Psychomotor hyperactivity [Unknown]
  - Analgesic drug level decreased [Unknown]
  - Neutrophil count increased [Unknown]
  - Eosinophil count increased [Unknown]
  - Failure of child resistant mechanism for pharmaceutical product [None]
